FAERS Safety Report 13141217 (Version 2)
Quarter: 2017Q1

REPORT INFORMATION
  Report Type: Spontaneous
  Country: US (occurrence: US)
  Receive Date: 20170123
  Receipt Date: 20170302
  Transmission Date: 20170428
  Serious: Yes (Hospitalization)
  Sender: FDA-Public Use
  Company Number: US-JNJFOC-20170117188

PATIENT
  Age: 48 Year
  Sex: Female
  Weight: 67.59 kg

DRUGS (3)
  1. FENTANYL TRANSDERMAL SYSTEM [Suspect]
     Active Substance: FENTANYL
     Indication: CARTILAGE INJURY
     Route: 062
     Dates: start: 201608
  2. FENTANYL TRANSDERMAL SYSTEM [Suspect]
     Active Substance: FENTANYL
     Indication: KNEE ARTHROPLASTY
     Route: 062
     Dates: start: 201608
  3. FENTANYL TRANSDERMAL SYSTEM [Suspect]
     Active Substance: FENTANYL
     Indication: CARPAL TUNNEL SYNDROME
     Route: 062
     Dates: start: 201608

REACTIONS (4)
  - Drug dose omission [Unknown]
  - Knee arthroplasty [Unknown]
  - Wrong technique in product usage process [Unknown]
  - Product adhesion issue [Unknown]

NARRATIVE: CASE EVENT DATE: 201608
